FAERS Safety Report 9235742 (Version 2)
Quarter: 2013Q2

REPORT INFORMATION
  Report Type: Spontaneous
  Country: GB (occurrence: GB)
  Receive Date: 20130417
  Receipt Date: 20130528
  Transmission Date: 20140414
  Serious: Yes (Hospitalization, Other)
  Sender: FDA-Public Use
  Company Number: GB-MPIJNJ-2013-02313

PATIENT
  Sex: 0

DRUGS (6)
  1. VELCADE [Suspect]
     Indication: PLASMA CELL MYELOMA
     Dosage: 2.86 MG, UNK
     Route: 058
     Dates: start: 20130114, end: 20130307
  2. CITALOPRAM [Concomitant]
     Dosage: 20 MG, UNK
     Route: 048
  3. CAVERJECT DUAL [Concomitant]
     Dosage: UNK, PRN
     Route: 030
  4. METOPROLOL [Concomitant]
     Dosage: 100 MG, BID
     Route: 048
     Dates: end: 20130311
  5. TAMSULOSIN [Concomitant]
     Dosage: UNK
     Route: 048
     Dates: end: 20130311
  6. PARACETAMOL [Concomitant]
     Dosage: UNK, PRN
     Route: 048

REACTIONS (3)
  - Orthostatic hypotension [Recovered/Resolved]
  - Fall [Recovered/Resolved]
  - Diarrhoea [Not Recovered/Not Resolved]
